FAERS Safety Report 24052460 (Version 1)
Quarter: 2024Q3

REPORT INFORMATION
  Report Type: Spontaneous
  Country: FR (occurrence: FR)
  Receive Date: 20240705
  Receipt Date: 20240705
  Transmission Date: 20241017
  Serious: Yes (Other)
  Sender: GLAXOSMITHKLINE
  Company Number: None

PATIENT

DRUGS (1)
  1. VENTOLIN [Suspect]
     Active Substance: ALBUTEROL SULFATE
     Indication: Asthma
     Dosage: UNK (5 ARBITRARY UNIT) (IN CASE OF ASTHMA ATTACK. 3 INHALATIONS OF 5 UNITS AT 15 MINUTE INTERVALS)
     Route: 055
     Dates: start: 20240616

REACTIONS (4)
  - Hallucination [Recovered/Resolved]
  - Logorrhoea [Recovered/Resolved]
  - Headache [Recovered/Resolved]
  - Agitation [Recovered/Resolved]

NARRATIVE: CASE EVENT DATE: 20240616
